FAERS Safety Report 4395964-9 (Version None)
Quarter: 2004Q3

REPORT INFORMATION
  Report Type: 
  Country: None (occurrence: None)
  Receive Date: 20040707
  Receipt Date: 20040624
  Transmission Date: 20050211
  Serious: Yes (Hospitalization)
  Sender: FDA-Public Use
  Company Number: K200400927

PATIENT
  Age: 68 Year
  Sex: Male

DRUGS (9)
  1. ALTACE [Suspect]
     Dosage: 1.25 MG, QD,ORAL
     Route: 048
     Dates: start: 20040401, end: 20040412
  2. DETENSIEL (BISOPROLOL) TABLET, 10 MG [Suspect]
     Dosage: 0.5 MG, QD, ORAL
     Route: 048
     Dates: start: 20040401, end: 20040412
  3. AMLODIPINE BESYLATE [Suspect]
     Dosage: 5 MG, QD, ORAL
     Route: 048
     Dates: start: 20040401, end: 20040412
  4. CALCIPARINE ^DIFREX^ (HEPARIN CALCIUM) [Concomitant]
  5. OMEPRAZOLE [Concomitant]
  6. XANAX [Concomitant]
  7. MONICOR (ISOSORBIDE MONONITRATE) CAPSULES [Concomitant]
  8. VIASTEN (PRAVASTATIN SODIUM) [Concomitant]
  9. AMIODARONE HCL [Concomitant]

REACTIONS (4)
  - HEPATITIS CHOLESTATIC [None]
  - HEPATITIS INFECTIOUS [None]
  - RESPIRATORY TRACT INFECTION [None]
  - STAPHYLOCOCCAL INFECTION [None]
